FAERS Safety Report 20405468 (Version 1)
Quarter: 2022Q1

REPORT INFORMATION
  Report Type: Spontaneous
  Country: US (occurrence: None)
  Receive Date: 20220129
  Receipt Date: 20220129
  Transmission Date: 20220424
  Serious: Yes (Other)
  Sender: FDA-Public Use
  Company Number: None

PATIENT
  Age: 54 Year
  Sex: Female
  Weight: 51.75 kg

DRUGS (1)
  1. BUPRENORPHINE [Suspect]
     Active Substance: BUPRENORPHINE
     Indication: Sciatic nerve injury
     Dosage: OTHER QUANTITY : 1 180;?FREQUENCY : 3 TIMES A DAY;?
     Route: 060

REACTIONS (6)
  - Gingival pain [None]
  - Tooth fracture [None]
  - Dental restoration failure [None]
  - Hyperaesthesia teeth [None]
  - Gingival pain [None]
  - Toothache [None]

NARRATIVE: CASE EVENT DATE: 20191101
